FAERS Safety Report 19858222 (Version 2)
Quarter: 2021Q4

REPORT INFORMATION
  Report Type: Spontaneous
  Country: US (occurrence: US)
  Receive Date: 20210921
  Receipt Date: 20211005
  Transmission Date: 20220303
  Serious: No
  Sender: FDA-Public Use
  Company Number: US-TEVA-2021-US-1955247

PATIENT
  Age: 86 Year
  Sex: Female

DRUGS (1)
  1. CLONIDINE HYDROCHLORIDE [Suspect]
     Active Substance: CLONIDINE HYDROCHLORIDE
     Indication: Hypertension
     Route: 062
     Dates: start: 202102

REACTIONS (5)
  - Application site erythema [Not Recovered/Not Resolved]
  - Dermatitis contact [Unknown]
  - Application site burn [Not Recovered/Not Resolved]
  - Application site scar [Unknown]
  - Product quality issue [Unknown]

NARRATIVE: CASE EVENT DATE: 20210801
